FAERS Safety Report 6713342-1 (Version None)
Quarter: 2010Q2

REPORT INFORMATION
  Report Type: 
  Country: None (occurrence: None)
  Receive Date: 20100504
  Receipt Date: 20100422
  Transmission Date: 20101027
  Serious: Yes (Congenital Anomaly)
  Sender: FDA-Public Use
  Company Number: 167-20484-09111373

PATIENT
  Sex: Male

DRUGS (11)
  1. INNOHEP [Suspect]
     Indication: PROPHYLAXIS OF ABORTION
     Dosage: TRANSPLACENTAL
     Route: 064
     Dates: start: 20021004, end: 20030529
  2. ASPIRIN [Concomitant]
  3. FOLIC ACID [Concomitant]
  4. PENICILLIN V [Concomitant]
  5. PROSTAGLANDINS (PROSTAGLANDINS) [Concomitant]
  6. KAPAKE (CODEINE PHOSPHATE, PARACETAMOL) [Concomitant]
  7. MEPERIDINE HCL [Concomitant]
  8. MAXOLON [Concomitant]
  9. LIDOCAINE [Concomitant]
  10. BUPIVACAINE WITH FENTANYL (FENTANYL, BUPIVACAINE) [Concomitant]
  11. SYNTOCINON [Concomitant]

REACTIONS (2)
  - MATERNAL DRUGS AFFECTING FOETUS [None]
  - PYELOCALIECTASIS [None]
